FAERS Safety Report 26190938 (Version 1)
Quarter: 2025Q4

REPORT INFORMATION
  Report Type: Spontaneous
  Country: US (occurrence: None)
  Receive Date: 20251222
  Receipt Date: 20251222
  Transmission Date: 20260118
  Serious: Yes (Other)
  Sender: FDA-CTU
  Company Number: None

PATIENT
  Age: 67 Year
  Sex: Female

DRUGS (1)
  1. STEQEYMA [Suspect]
     Active Substance: USTEKINUMAB-STBA
     Indication: Proctitis ulcerative
     Dosage: OTHER FREQUENCY : EVERY 6 WEEKS;

REACTIONS (3)
  - Proctitis ulcerative [None]
  - Condition aggravated [None]
  - Off label use [None]
